FAERS Safety Report 4772730-3 (Version None)
Quarter: 2005Q3

REPORT INFORMATION
  Report Type: 
  Country: None (occurrence: None)
  Receive Date: 20050919
  Receipt Date: 20050824
  Transmission Date: 20060218
  Serious: Yes (Life-Threatening, Hospitalization)
  Sender: FDA-Public Use
  Company Number: FR-SANOFI-SYNTHELABO-A02200502252

PATIENT
  Sex: Male
  Weight: 74 kg

DRUGS (3)
  1. XATRAL [Suspect]
     Indication: PROSTATIC ADENOMA
     Route: 048
     Dates: start: 20050101, end: 20050819
  2. LODALES [Concomitant]
     Route: 048
     Dates: end: 20050819
  3. THERALENE [Concomitant]
     Dosage: UNK
     Route: 065
     Dates: end: 20050806

REACTIONS (2)
  - SYNCOPE [None]
  - TORSADE DE POINTES [None]
